FAERS Safety Report 5320269-9 (Version None)
Quarter: 2007Q2

REPORT INFORMATION
  Report Type: 
  Country: None (occurrence: None)
  Receive Date: 20070503
  Receipt Date: 20070503
  Transmission Date: 20071010
  Serious: Yes (Hospitalization)
  Sender: FDA-Public Use
  Company Number: None

PATIENT
  Age: 51 Year
  Sex: Female

DRUGS (2)
  1. PHOSPHOSODA GINGER LEMON [Suspect]
     Indication: COLONOSCOPY
     Dosage: 45 ML;X1;PO
     Route: 048
     Dates: start: 20070409, end: 20070410
  2. SYNTHROID [Concomitant]

REACTIONS (5)
  - BLOOD SODIUM DECREASED [None]
  - DEHYDRATION [None]
  - ELECTROLYTE IMBALANCE [None]
  - GRAND MAL CONVULSION [None]
  - VOMITING [None]
